FAERS Safety Report 13789620 (Version 1)
Quarter: 2017Q3

REPORT INFORMATION
  Report Type: Spontaneous
  Country: US (occurrence: US)
  Receive Date: 20170725
  Receipt Date: 20170725
  Transmission Date: 20171127
  Serious: No
  Sender: FDA-Public Use
  Company Number: US-UNITED THERAPEUTICS-UNT-2017-001682

PATIENT
  Age: 1 Year
  Sex: Male
  Weight: 7.26 kg

DRUGS (1)
  1. REMODULIN [Suspect]
     Active Substance: TREPROSTINIL
     Indication: PULMONARY HYPERTENSION
     Dosage: 0.04286 ?G/KG, CONTINUING
     Route: 058
     Dates: start: 20161109

REACTIONS (7)
  - Flushing [Unknown]
  - Livedo reticularis [Unknown]
  - Infusion site infection [Unknown]
  - Infusion site erythema [Unknown]
  - Heart rate increased [Unknown]
  - Infusion site irritation [Unknown]
  - Infusion site pain [Unknown]

NARRATIVE: CASE EVENT DATE: 201702
